FAERS Safety Report 5493499-3 (Version None)
Quarter: 2007Q4

REPORT INFORMATION
  Report Type: 
  Country: None (occurrence: None)
  Receive Date: 20071023
  Receipt Date: 20071015
  Transmission Date: 20080405
  Serious: Yes (Hospitalization)
  Sender: FDA-Public Use
  Company Number: US-ELI_LILLY_AND_COMPANY-US200708006416

PATIENT
  Sex: Female

DRUGS (10)
  1. BYETTA [Suspect]
     Indication: TYPE 2 DIABETES MELLITUS
     Dosage: 5 UG, 2/D
     Route: 058
     Dates: start: 20060101
  2. BYETTA [Suspect]
     Dosage: 10 UG, 2/D
     Route: 058
  3. SPIRIVA [Concomitant]
     Indication: ASTHMA
     Dosage: UNK, UNKNOWN
  4. FLOVENT [Concomitant]
     Indication: ASTHMA
     Dosage: 44 UG, 2/D
     Route: 055
     Dates: start: 20070601
  5. ALBUTEROL [Concomitant]
     Dosage: 2 UNK, AS NEEDED
     Route: 055
  6. PREVACID [Concomitant]
     Indication: GASTROOESOPHAGEAL REFLUX DISEASE
     Dosage: 30 MG, DAILY (1/D)
     Route: 048
  7. ALLEGRA [Concomitant]
     Indication: HYPERSENSITIVITY
     Dosage: 180 MG, DAILY (1/D)
  8. HYDROCHLOROTHIAZIDE [Concomitant]
     Indication: HYPERTENSION
     Dosage: 25 MG, DAILY (1/D)
  9. IMDUR [Concomitant]
     Indication: CORONARY ARTERY DISEASE
     Dosage: 120 MG, DAILY (1/D)
  10. ENABLEX                            /01760402/ [Concomitant]
     Indication: URGE INCONTINENCE
     Dosage: 7.5 MG, EACH EVENING

REACTIONS (1)
  - ASTHMA [None]
